FAERS Safety Report 9688378 (Version 1)
Quarter: 2013Q4

REPORT INFORMATION
  Report Type: Spontaneous
  Country: US (occurrence: US)
  Receive Date: 20131114
  Receipt Date: 20131114
  Transmission Date: 20140711
  Serious: Yes (Other)
  Sender: FDA-Public Use
  Company Number: US-GE HEALTHCARE MEDICAL DIAGNOSTICS-M123-PR-1311S-0012

PATIENT
  Age: 32 Year
  Sex: Female

DRUGS (3)
  1. ADREVIEW [Suspect]
     Indication: PHAEOCHROMOCYTOMA
     Route: 042
     Dates: start: 20131105, end: 20131105
  2. ADREVIEW [Suspect]
     Indication: DIAGNOSTIC PROCEDURE
  3. SSKI [Concomitant]
     Indication: THYROID DISORDER
     Route: 048
     Dates: start: 20131105, end: 20131105

REACTIONS (1)
  - Urticaria [Not Recovered/Not Resolved]
